FAERS Safety Report 13667345 (Version 1)
Quarter: 2017Q2

REPORT INFORMATION
  Report Type: Spontaneous
  Country: DK (occurrence: DK)
  Receive Date: 20170620
  Receipt Date: 20170620
  Transmission Date: 20170830
  Serious: Yes (Hospitalization)
  Sender: FDA-Public Use
  Company Number: DK-ROCHE-1951813

PATIENT
  Age: 76 Year
  Sex: Female
  Weight: 44 kg

DRUGS (2)
  1. ZELBORAF [Suspect]
     Active Substance: VEMURAFENIB
     Indication: MALIGNANT MELANOMA
     Dosage: VARYING DOSES.
     Route: 048
     Dates: start: 20170323
  2. COTELLIC [Suspect]
     Active Substance: COBIMETINIB
     Indication: MALIGNANT MELANOMA
     Dosage: VARYING DOSES.
     Route: 048
     Dates: start: 20170323

REACTIONS (3)
  - Abdominal pain upper [Unknown]
  - Pancreatitis acute [Recovering/Resolving]
  - Rash [Recovering/Resolving]

NARRATIVE: CASE EVENT DATE: 201705
